FAERS Safety Report 20745867 (Version 1)
Quarter: 2022Q2

REPORT INFORMATION
  Report Type: Spontaneous
  Country: US (occurrence: None)
  Receive Date: 20220423
  Receipt Date: 20220423
  Transmission Date: 20220721
  Serious: Yes (Disabling)
  Sender: FDA-Public Use
  Company Number: None

PATIENT
  Age: 30 Year
  Sex: Female
  Weight: 60.75 kg

DRUGS (5)
  1. ELURYNG [Suspect]
     Active Substance: ETHINYL ESTRADIOL\ETONOGESTREL
     Indication: Contraception
     Dosage: OTHER FREQUENCY : MONTHLY;?
     Route: 067
     Dates: start: 20201103, end: 20210414
  2. TRAZODONE [Concomitant]
     Active Substance: TRAZODONE HYDROCHLORIDE
  3. ADDERALL [Concomitant]
     Active Substance: AMPHETAMINE ASPARTATE\AMPHETAMINE SULFATE\DEXTROAMPHETAMINE SACCHARATE\DEXTROAMPHETAMINE SULFATE
  4. PROPRANOLOL [Concomitant]
     Active Substance: PROPRANOLOL HYDROCHLORIDE
  5. women^s one a day multi [Concomitant]

REACTIONS (26)
  - Arthralgia [None]
  - Back pain [None]
  - Dyspepsia [None]
  - Muscle spasms [None]
  - Haemorrhage [None]
  - Insomnia [None]
  - Weight increased [None]
  - Mood swings [None]
  - Panic attack [None]
  - Anxiety [None]
  - Breast tenderness [None]
  - Abdominal pain upper [None]
  - Abdominal distension [None]
  - Diarrhoea [None]
  - Headache [None]
  - Suicidal ideation [None]
  - Depression [None]
  - Device difficult to use [None]
  - Fatigue [None]
  - Muscle spasms [None]
  - Dry eye [None]
  - Vaginal odour [None]
  - Vulvovaginal mycotic infection [None]
  - Nausea [None]
  - Constipation [None]
  - Acne [None]

NARRATIVE: CASE EVENT DATE: 20220410
